FAERS Safety Report 4566650-7 (Version None)
Quarter: 2005Q1

REPORT INFORMATION
  Report Type: 
  Country: None (occurrence: None)
  Receive Date: 20050126
  Receipt Date: 20050113
  Transmission Date: 20050727
  Serious: Yes (Hospitalization, Other)
  Sender: FDA-Public Use
  Company Number: 2004117047

PATIENT
  Age: 35 Year
  Sex: Male
  Weight: 74 kg

DRUGS (4)
  1. BEXTRA [Suspect]
     Indication: BACK PAIN
     Dates: start: 20040601, end: 20041001
  2. ATENOLOL [Concomitant]
  3. HYDROCHLOROTHIAZIDE [Concomitant]
  4. ISRADIPINE [Concomitant]

REACTIONS (11)
  - ACUTE RESPIRATORY FAILURE [None]
  - ANEURYSM [None]
  - BLOOD GLUCOSE INCREASED [None]
  - BLOOD UREA INCREASED [None]
  - HAEMATEMESIS [None]
  - HAEMATOCRIT DECREASED [None]
  - HAEMOGLOBIN DECREASED [None]
  - HEART RATE INCREASED [None]
  - MELAENA [None]
  - PROTHROMBIN TIME PROLONGED [None]
  - RESPIRATORY RATE INCREASED [None]
